FAERS Safety Report 8911764 (Version 1)
Quarter: 2012Q4

REPORT INFORMATION
  Report Type: 
  Country: AT (occurrence: AT)
  Receive Date: 20121116
  Receipt Date: 20121116
  Transmission Date: 20130627
  Serious: Yes (Other)
  Sender: FDA-Public Use
  Company Number: AT-PFIZER INC-2012282080

PATIENT
  Sex: Female

DRUGS (1)
  1. SAYANA [Suspect]
     Dosage: UNK, every 3 months
     Dates: start: 2009

REACTIONS (4)
  - Optic atrophy [Not Recovered/Not Resolved]
  - Optic neuritis [Not Recovered/Not Resolved]
  - Visual field defect [Not Recovered/Not Resolved]
  - Visual impairment [Not Recovered/Not Resolved]
